FAERS Safety Report 6304112-7 (Version None)
Quarter: 2009Q3

REPORT INFORMATION
  Report Type: 
  Country: None (occurrence: None)
  Receive Date: 20090806
  Receipt Date: 20090729
  Transmission Date: 20100115
  Serious: Yes (Death)
  Sender: FDA-Public Use
  Company Number: 2008AL011228

PATIENT
  Age: 66 Year
  Sex: Male

DRUGS (15)
  1. DIGOXIN [Suspect]
     Dosage: 0.25MG, PO
     Route: 048
     Dates: start: 20040101, end: 20061017
  2. LIPITOR [Concomitant]
  3. CEPHALEXIN [Concomitant]
  4. TUSSIONEX [Concomitant]
  5. GUAIFENESIN [Concomitant]
  6. COMBIVENT [Concomitant]
  7. FLOMAX [Concomitant]
  8. PREDNISONE [Concomitant]
  9. PROTONIX [Concomitant]
  10. MUCINEX [Concomitant]
  11. FEXOFENADINE [Concomitant]
  12. NEXIUM [Concomitant]
  13. FUROSEMIDE [Concomitant]
  14. DILTIAZEM HCL [Concomitant]
  15. CARTIA XT [Concomitant]

REACTIONS (17)
  - ANHEDONIA [None]
  - ANXIETY [None]
  - ARRHYTHMIA [None]
  - CARDIAC DEATH [None]
  - DEFORMITY [None]
  - DIZZINESS [None]
  - DYSPEPSIA [None]
  - ECONOMIC PROBLEM [None]
  - ILL-DEFINED DISORDER [None]
  - MULTIPLE INJURIES [None]
  - NAUSEA [None]
  - PAIN [None]
  - PARTNER STRESS [None]
  - SOCIAL PROBLEM [None]
  - SUDDEN DEATH [None]
  - THERAPEUTIC AGENT TOXICITY [None]
  - WEIGHT DECREASED [None]
